FAERS Safety Report 24168658 (Version 1)
Quarter: 2024Q3

REPORT INFORMATION
  Report Type: Spontaneous
  Country: KR (occurrence: KR)
  Receive Date: 20240802
  Receipt Date: 20240802
  Transmission Date: 20241017
  Serious: Yes (Death, Other)
  Sender: BRISTOL MYERS SQUIBB
  Company Number: KR-BRISTOL-MYERS SQUIBB COMPANY-2024-116890

PATIENT
  Age: 51 Year
  Sex: Male
  Weight: 69 kg

DRUGS (8)
  1. BARACLUDE [Suspect]
     Active Substance: ENTECAVIR
     Indication: Product used for unknown indication
  2. MYCOPHENOLATE MOFETIL [Concomitant]
     Active Substance: MYCOPHENOLATE MOFETIL
     Indication: Product used for unknown indication
     Dosage: 0.33 INTERVAL PER DAYS
     Dates: start: 20201112, end: 20201203
  3. MYCOPHENOLATE MOFETIL [Concomitant]
     Active Substance: MYCOPHENOLATE MOFETIL
     Dosage: 0.33 INTERVAL PER DAYS
     Dates: start: 20201107, end: 20201108
  4. MYCOPHENOLATE MOFETIL [Concomitant]
     Active Substance: MYCOPHENOLATE MOFETIL
     Dosage: 0.33 INTERVAL PER DAYS
     Dates: start: 20201020, end: 20201026
  5. MYCOPHENOLATE MOFETIL [Concomitant]
     Active Substance: MYCOPHENOLATE MOFETIL
     Dosage: 0.33 INTERVAL PER DAYS
     Dates: start: 20201028, end: 20201104
  6. MYCOPHENOLATE MOFETIL [Concomitant]
     Active Substance: MYCOPHENOLATE MOFETIL
     Dosage: 0.33 INTERVAL PER DAYS
     Dates: start: 20201110, end: 20201110
  7. ACYCLOVIR [Concomitant]
     Active Substance: ACYCLOVIR
     Indication: Product used for unknown indication
     Dosage: 0.33 INTERVAL PER DAY
     Dates: start: 20201025, end: 20201028
  8. GANCICLOVIR [Concomitant]
     Active Substance: GANCICLOVIR
     Indication: Product used for unknown indication
     Dates: start: 20201110, end: 20201208

REACTIONS (1)
  - Venoocclusive liver disease [Fatal]

NARRATIVE: CASE EVENT DATE: 20201113
